FAERS Safety Report 6510738-8 (Version None)
Quarter: 2009Q4

REPORT INFORMATION
  Report Type: 
  Country: None (occurrence: None)
  Receive Date: 20091221
  Receipt Date: 20091221
  Transmission Date: 20100525
  Serious: No
  Sender: FDA-Public Use
  Company Number: None

PATIENT
  Age: 68 Year
  Sex: Female
  Weight: 113.3993 kg

DRUGS (2)
  1. CLINDAMYCIN [Suspect]
     Indication: SINUSITIS
     Dosage: 2 CAPS 4 TIMES DAILY PO
     Route: 048
     Dates: start: 20091116, end: 20091203
  2. LEVAQUIN [Suspect]
     Indication: SINUSITIS
     Dosage: 1 TABLET ONCE DAILY PO
     Route: 048
     Dates: start: 20091204, end: 20091211

REACTIONS (4)
  - ARTHRALGIA [None]
  - ARTHROPATHY [None]
  - ASTHENIA [None]
  - RASH GENERALISED [None]
